FAERS Safety Report 8022807-4 (Version None)
Quarter: 2012Q1

REPORT INFORMATION
  Report Type: 
  Country: None (occurrence: None)
  Receive Date: 20120104
  Receipt Date: 20111229
  Transmission Date: 20120608
  Serious: Yes (Hospitalization, Disabling)
  Sender: FDA-Public Use
  Company Number: US-MERCK-1107USA01368

PATIENT
  Age: 50 Year
  Sex: Female
  Weight: 64 kg

DRUGS (11)
  1. FOSAMAX [Suspect]
     Indication: OSTEOPENIA
     Route: 048
     Dates: start: 20000401, end: 20001101
  2. FOSAMAX [Suspect]
     Route: 048
     Dates: start: 20080601, end: 20090601
  3. ALENDRONATE SODIUM [Suspect]
     Indication: OSTEOPOROSIS
     Route: 048
     Dates: start: 20080301, end: 20080501
  4. CALCIUM (UNSPECIFIED) [Concomitant]
     Route: 065
     Dates: start: 20050101
  5. FOSAMAX [Suspect]
     Route: 048
     Dates: start: 20010101, end: 20080201
  6. ALENDRONATE SODIUM [Suspect]
     Indication: OSTEOPENIA
     Route: 048
     Dates: start: 20080301, end: 20080501
  7. FOSAMAX [Suspect]
     Indication: OSTEOPOROSIS
     Route: 048
     Dates: start: 20000401, end: 20001101
  8. PROTONIX [Concomitant]
     Route: 065
     Dates: start: 20050101
  9. FOSAMAX [Suspect]
     Route: 048
     Dates: start: 20010101, end: 20080201
  10. FOSAMAX [Suspect]
     Route: 048
     Dates: start: 20080601, end: 20090601
  11. VITAMIN D (UNSPECIFIED) [Concomitant]
     Route: 065
     Dates: start: 20050101

REACTIONS (13)
  - HYPERLIPIDAEMIA [None]
  - DEVICE FAILURE [None]
  - FALL [None]
  - HAND FRACTURE [None]
  - FOOT FRACTURE [None]
  - ASTHMA [None]
  - FEMUR FRACTURE [None]
  - LOW TURNOVER OSTEOPATHY [None]
  - EXOSTOSIS [None]
  - EXCORIATION [None]
  - ANXIETY [None]
  - OSTEOARTHRITIS [None]
  - FRACTURE NONUNION [None]
